FAERS Safety Report 5183833-6 (Version None)
Quarter: 2006Q4

REPORT INFORMATION
  Report Type: 
  Country: None (occurrence: None)
  Receive Date: 20061220
  Receipt Date: 20061005
  Transmission Date: 20070319
  Serious: Yes (Hospitalization)
  Sender: FDA-Public Use
  Company Number: JP-GLAXOSMITHKLINE-B0441267A

PATIENT
  Age: 68 Year
  Sex: Female

DRUGS (15)
  1. CARVEDILOL [Suspect]
     Indication: MYOCARDIAL INFARCTION
     Dosage: 2.5MG TWICE PER DAY
     Route: 048
     Dates: start: 20041123, end: 20050305
  2. NITROGLYCERIN [Concomitant]
     Dates: start: 20041031, end: 20041105
  3. HANP [Concomitant]
     Dates: start: 20041031, end: 20041102
  4. FUROSEMIDE [Concomitant]
     Dates: start: 20041031, end: 20041120
  5. SOLDACTONE [Concomitant]
     Dates: start: 20041031, end: 20041120
  6. LIDOCAINE [Concomitant]
     Dates: start: 20041121, end: 20041124
  7. ASPIRIN [Concomitant]
     Dates: start: 20041031, end: 20050402
  8. TAKEPRON [Concomitant]
     Dates: start: 20041031, end: 20050402
  9. NU-LOTAN [Concomitant]
     Dates: start: 20041031, end: 20050402
  10. PAXIL [Concomitant]
     Dates: start: 20041031, end: 20050402
  11. NITRODERM [Concomitant]
     Dates: start: 20041105, end: 20050402
  12. WARFARIN SODIUM [Concomitant]
     Dates: start: 20040911, end: 20050402
  13. LASIX [Concomitant]
     Dates: start: 20041120, end: 20050402
  14. ALDACTONE [Concomitant]
     Dates: start: 20041120, end: 20041218
  15. ZESTRIL [Concomitant]
     Dates: start: 20041202, end: 20050402

REACTIONS (1)
  - CARDIAC FAILURE [None]
